FAERS Safety Report 17145049 (Version 1)
Quarter: 2019Q4

REPORT INFORMATION
  Report Type: Spontaneous
  Country: US (occurrence: US)
  Receive Date: 20191211
  Receipt Date: 20191211
  Transmission Date: 20200122
  Serious: No
  Sender: FDA-Public Use
  Company Number: None

PATIENT
  Age: 33 Year
  Sex: Female
  Weight: 96.75 kg

DRUGS (1)
  1. ORILISSA [Suspect]
     Active Substance: ELAGOLIX SODIUM
     Indication: ENDOMETRIOSIS
     Dosage: ?          QUANTITY:12 TABLET(S);?
     Route: 048
     Dates: start: 20191125, end: 20191211

REACTIONS (4)
  - Arthralgia [None]
  - Depression [None]
  - Dizziness [None]
  - Myalgia [None]

NARRATIVE: CASE EVENT DATE: 20191206
